FAERS Safety Report 6671433-8 (Version None)
Quarter: 2010Q2

REPORT INFORMATION
  Report Type: 
  Country: None (occurrence: None)
  Receive Date: 20100406
  Receipt Date: 20100406
  Transmission Date: 20101027
  Serious: Yes (Disabling)
  Sender: FDA-Public Use
  Company Number: None

PATIENT
  Sex: Male
  Weight: 58.9676 kg

DRUGS (2)
  1. CONCERTA [Suspect]
     Indication: ATTENTION DEFICIT/HYPERACTIVITY DISORDER
     Dosage: 36 MG TABLET SA ONCE A DAY PO
     Route: 048
     Dates: start: 20000101, end: 20100319
  2. MIRTAZAPINE [Suspect]
     Indication: OPPOSITIONAL DEFIANT DISORDER
     Dosage: MIRTAZAPINE 15MG ONCE A DAY PO
     Route: 048
     Dates: start: 20090323, end: 20090401

REACTIONS (6)
  - AGITATION [None]
  - ANXIETY [None]
  - CONTRAINDICATION TO MEDICAL TREATMENT [None]
  - DEPRESSION [None]
  - PSYCHOMOTOR HYPERACTIVITY [None]
  - TENSION [None]
